FAERS Safety Report 5636359-7 (Version None)
Quarter: 2008Q1

REPORT INFORMATION
  Report Type: 
  Country: None (occurrence: None)
  Receive Date: 20080225
  Receipt Date: 20080219
  Transmission Date: 20080703
  Serious: Yes (Hospitalization, Other)
  Sender: FDA-Public Use
  Company Number: PHBS2007JP21309

PATIENT
  Age: 8 Year
  Sex: Female

DRUGS (10)
  1. TEGRETOL [Suspect]
     Indication: CONVULSION
     Dosage: 120 MG/DAY
     Route: 048
     Dates: start: 20070313, end: 20070326
  2. ALEVIATIN [Suspect]
     Indication: CONVULSION
     Dosage: 200 MG/DAY
     Route: 048
     Dates: start: 20070210, end: 20070506
  3. SELENICA-R [Suspect]
     Indication: CONVULSION
     Dosage: 450 MG/DAY
     Route: 048
     Dates: start: 20070301, end: 20070313
  4. MYSTAN [Concomitant]
     Indication: CONVULSION
     Dosage: 10 MG/DAY
     Route: 048
     Dates: start: 20070216
  5. PHENOBAL [Concomitant]
     Indication: CONVULSION
     Dosage: 100 MG/DAY
     Route: 048
     Dates: start: 20070211, end: 20070319
  6. LANSOPRAZOLE [Concomitant]
     Indication: GASTRIC ULCER
     Dosage: 15 MG/DAY
     Route: 048
     Dates: start: 20070216, end: 20070319
  7. PANCAL [Concomitant]
     Indication: VITAMIN SUPPLEMENTATION
     Dosage: 1 G/DAY
     Route: 048
     Dates: start: 20070216
  8. ZONISAMIDE [Concomitant]
     Indication: CONVULSION
     Dosage: 100 MG/DAY
     Dates: start: 20070322
  9. URSO 250 [Concomitant]
     Dosage: 100 MG/DAY
     Route: 048
     Dates: start: 20070314
  10. MIDAZOLAM HCL [Concomitant]
     Indication: CONVULSION
     Dosage: 60 MG/DAY
     Route: 042
     Dates: start: 20070216, end: 20070227

REACTIONS (12)
  - ALANINE AMINOTRANSFERASE INCREASED [None]
  - ASPARTATE AMINOTRANSFERASE INCREASED [None]
  - B-LYMPHOCYTE COUNT DECREASED [None]
  - BLOOD ALKALINE PHOSPHATASE INCREASED [None]
  - DRUG INEFFECTIVE [None]
  - GRANULOCYTOPENIA [None]
  - HEPATIC FUNCTION ABNORMAL [None]
  - HYPOGAMMAGLOBULINAEMIA [None]
  - PYREXIA [None]
  - RASH [None]
  - STREPTOCOCCAL IDENTIFICATION TEST POSITIVE [None]
  - TONIC CLONIC MOVEMENTS [None]
